FAERS Safety Report 4782930-4 (Version None)
Quarter: 2005Q3

REPORT INFORMATION
  Report Type: 
  Country: None (occurrence: None)
  Receive Date: 20050928
  Receipt Date: 20050928
  Transmission Date: 20060218
  Serious: Yes (Hospitalization)
  Sender: FDA-Public Use
  Company Number: None

PATIENT
  Age: 59 Year
  Sex: Female
  Weight: 129.6 kg

DRUGS (10)
  1. LIPITOR [Suspect]
     Dosage: QD
  2. LASIX [Concomitant]
  3. INSULIN [Concomitant]
  4. NORVASC [Concomitant]
  5. ASPIRIN [Concomitant]
  6. POTASSIUM [Concomitant]
  7. COZAAR [Concomitant]
  8. METOLAONE [Concomitant]
  9. GABAPENTIN [Concomitant]
  10. ACETAMINOPHEN [Concomitant]

REACTIONS (10)
  - ASTHENIA [None]
  - BLOOD GLUCOSE DECREASED [None]
  - CONSTIPATION [None]
  - DISEASE PROGRESSION [None]
  - DRY SKIN [None]
  - RASH [None]
  - RHABDOMYOLYSIS [None]
  - SKIN EXFOLIATION [None]
  - URINARY TRACT INFECTION [None]
  - WEIGHT DECREASED [None]
